FAERS Safety Report 7249243-2 (Version None)
Quarter: 2011Q1

REPORT INFORMATION
  Report Type: 
  Country: None (occurrence: None)
  Receive Date: 20110128
  Receipt Date: 20101116
  Transmission Date: 20110831
  Serious: Yes (Hospitalization, Disabling, Other)
  Sender: FDA-Public Use
  Company Number: US-BAYER-201021683NA

PATIENT
  Sex: Female
  Weight: 56.689 kg

DRUGS (3)
  1. YASMIN [Suspect]
     Indication: PREMENSTRUAL SYNDROME
     Dosage: UNK UNK, QD
     Route: 048
     Dates: start: 20070701, end: 20080611
  2. NICODERM [Concomitant]
     Indication: SMOKING CESSATION THERAPY
     Dosage: DAILY DOSE 21 MG
     Route: 062
     Dates: start: 20080611
  3. MINOCYCLINE HCL [Concomitant]

REACTIONS (12)
  - ANXIETY [None]
  - COGNITIVE DISORDER [None]
  - CEREBRAL INFARCTION [None]
  - ABNORMAL BEHAVIOUR [None]
  - HEADACHE [None]
  - HALLUCINATION, VISUAL [None]
  - HALLUCINATION, OLFACTORY [None]
  - HEMIPARESIS [None]
  - SPEECH DISORDER [None]
  - HEMICEPHALALGIA [None]
  - DEPRESSION [None]
  - BRAIN OEDEMA [None]
